FAERS Safety Report 7113064-1 (Version None)
Quarter: 2010Q4

REPORT INFORMATION
  Report Type: 
  Country: None (occurrence: None)
  Receive Date: 20101119
  Receipt Date: 20101110
  Transmission Date: 20110411
  Serious: Yes (Hospitalization)
  Sender: FDA-Public Use
  Company Number: JP-JNJFOC-20100508282

PATIENT
  Age: 67 Year
  Sex: Male
  Weight: 73 kg

DRUGS (16)
  1. REMICADE [Suspect]
     Indication: PSORIASIS
     Route: 042
  2. REMICADE [Suspect]
     Route: 042
  3. REMICADE [Suspect]
     Route: 042
  4. REMICADE [Suspect]
     Route: 042
  5. MEROPENEM [Suspect]
     Indication: PRODUCT USED FOR UNKNOWN INDICATION
     Route: 042
  6. DERMOVATE [Concomitant]
     Indication: PSORIASIS
  7. OXAROL [Concomitant]
     Indication: PSORIASIS
  8. AMARYL [Concomitant]
     Indication: ILL-DEFINED DISORDER
     Route: 048
  9. ACTOS [Concomitant]
     Indication: ILL-DEFINED DISORDER
     Route: 048
  10. MEVALOTIN [Concomitant]
     Indication: ILL-DEFINED DISORDER
     Route: 048
  11. AMLODIPINE [Concomitant]
     Indication: ILL-DEFINED DISORDER
     Route: 048
  12. 8-HOUR BAYER [Concomitant]
     Indication: ILL-DEFINED DISORDER
     Route: 048
  13. ARTIST [Concomitant]
     Indication: ILL-DEFINED DISORDER
     Route: 048
  14. PANAPIDIN [Concomitant]
     Indication: ILL-DEFINED DISORDER
     Route: 048
  15. LUPRAC [Concomitant]
     Indication: ILL-DEFINED DISORDER
     Route: 048
  16. ENALAPRIL MALEATE [Concomitant]
     Indication: ILL-DEFINED DISORDER
     Route: 048

REACTIONS (6)
  - ALANINE AMINOTRANSFERASE INCREASED [None]
  - ASPARTATE AMINOTRANSFERASE INCREASED [None]
  - BLOOD LACTATE DEHYDROGENASE INCREASED [None]
  - HAEMOGLOBIN DECREASED [None]
  - HEPATIC FUNCTION ABNORMAL [None]
  - PNEUMONIA LEGIONELLA [None]
